FAERS Safety Report 15974842 (Version 1)
Quarter: 2019Q1

REPORT INFORMATION
  Report Type: Spontaneous
  Country: CN (occurrence: CN)
  Receive Date: 20190218
  Receipt Date: 20190218
  Transmission Date: 20190418
  Serious: Yes (Death, Other)
  Sender: FDA-Public Use
  Company Number: CN-LUPIN PHARMACEUTICALS INC.-2019-00800

PATIENT
  Age: 68 Year
  Sex: Female
  Weight: 55 kg

DRUGS (14)
  1. TEICOPLANIN [Suspect]
     Active Substance: TEICOPLANIN
     Indication: PANCREATITIS ACUTE
     Dosage: 400 MILLIGRAM, QD
     Route: 042
  2. VITAMIN C [Concomitant]
     Active Substance: ASCORBIC ACID
     Indication: PRODUCT USED FOR UNKNOWN INDICATION
     Dosage: UNK, QD, MICRO PUMP BOLUS (1 G / H)
     Route: 065
  3. GLUTEN [Concomitant]
     Active Substance: WHEAT GLUTEN
     Indication: PRODUCT USED FOR UNKNOWN INDICATION
     Dosage: 1800 MILLIGRAM, QD
     Route: 042
  4. LINEZOLID. [Concomitant]
     Active Substance: LINEZOLID
     Indication: PANCREATITIS ACUTE
     Dosage: 600 MILLIGRAM, BID
     Route: 042
  5. SOMATOSTATIN [Concomitant]
     Active Substance: SOMATOSTATIN
     Indication: PRODUCT USED FOR UNKNOWN INDICATION
     Dosage: UNK, QD, MICRO PUMP BOLUS (3 MG/ H)
     Route: 065
  6. CASPOFUNGIN [Concomitant]
     Active Substance: CASPOFUNGIN
     Indication: PRODUCT USED FOR UNKNOWN INDICATION
     Dosage: UNK, QD, 50 M
     Route: 042
  7. CEFEPIME [Concomitant]
     Active Substance: CEFEPIME HYDROCHLORIDE
     Indication: PANCREATITIS ACUTE
     Dosage: UNK, BID, 2
     Route: 042
  8. CEFTAZIDIME. [Concomitant]
     Active Substance: CEFTAZIDIME
     Indication: PANCREATITIS ACUTE
     Dosage: 2 GRAM, TID
     Route: 042
  9. VANCOMYCIN [Suspect]
     Active Substance: VANCOMYCIN
     Dosage: 0.5 GRAM, BID
     Route: 042
  10. AMIKACIN. [Concomitant]
     Active Substance: AMIKACIN
     Indication: PANCREATITIS ACUTE
     Dosage: 600 UNK, BID, ATOMIZED INHALATION
     Route: 055
  11. VANCOMYCIN [Suspect]
     Active Substance: VANCOMYCIN
     Indication: PANCREATITIS ACUTE
     Dosage: 1 GRAM, BID
     Route: 042
  12. TIGECYCLINE. [Concomitant]
     Active Substance: TIGECYCLINE
     Indication: PRODUCT USED FOR UNKNOWN INDICATION
     Dosage: 50 MILLIGRAM, BID
     Route: 042
  13. MOXIFLOXACIN. [Concomitant]
     Active Substance: MOXIFLOXACIN
     Indication: PANCREATITIS ACUTE
     Dosage: 400 MILLIGRAM, QD
     Route: 042
  14. MEROPENEM. [Concomitant]
     Active Substance: MEROPENEM
     Indication: PANCREATITIS ACUTE
     Dosage: 1 GRAM, TID
     Route: 042

REACTIONS (5)
  - Multiple organ dysfunction syndrome [Fatal]
  - Skin exfoliation [Recovering/Resolving]
  - Therapeutic product cross-reactivity [Unknown]
  - Erythema multiforme [Recovering/Resolving]
  - Drug eruption [Recovering/Resolving]
